FAERS Safety Report 16413482 (Version 2)
Quarter: 2019Q2

REPORT INFORMATION
  Report Type: Spontaneous
  Country: IT (occurrence: IT)
  Receive Date: 20190611
  Receipt Date: 20190612
  Transmission Date: 20190711
  Serious: Yes (Hospitalization)
  Sender: FDA-Public Use
  Company Number: IT-ABBVIE-19S-083-2810998-00

PATIENT
  Age: 34 Year
  Sex: Female

DRUGS (7)
  1. ONDANSETRON [Suspect]
     Active Substance: ONDANSETRON
     Indication: VOMITING
     Route: 042
  2. PROPOFOL KABI [Suspect]
     Active Substance: PROPOFOL
     Indication: ANAESTHESIA
     Dosage: EMULSIONE INIETTABILE O PER INFUSIONE
     Route: 042
  3. SEVORANE [Suspect]
     Active Substance: SEVOFLURANE
     Indication: ANAESTHESIA
     Dosage: LIQUIDO PER INALAZIONE
     Route: 055
  4. KETOPROFEN. [Suspect]
     Active Substance: KETOPROFEN
     Indication: PAIN
     Route: 042
  5. ROCURONIUM BROMIDE. [Suspect]
     Active Substance: ROCURONIUM BROMIDE
     Indication: ANAESTHESIA
     Route: 042
  6. FENTANYL. [Suspect]
     Active Substance: FENTANYL
     Indication: PAIN
     Route: 042
  7. DEXAMETHASONE SODIUM PHOSPHATE. [Suspect]
     Active Substance: DEXAMETHASONE SODIUM PHOSPHATE
     Indication: PREOPERATIVE HORMONE TREATMENT
     Route: 042

REACTIONS (5)
  - Tubulointerstitial nephritis [Recovered/Resolved]
  - Hypervolaemia [Recovered/Resolved]
  - Hepatomegaly [Recovered/Resolved]
  - Blood creatinine increased [Recovered/Resolved]
  - Azotaemia [Recovered/Resolved]

NARRATIVE: CASE EVENT DATE: 20190321
